FAERS Safety Report 15062033 (Version 2)
Quarter: 2018Q3

REPORT INFORMATION
  Report Type: Report from Study
  Country: US (occurrence: US)
  Receive Date: 20180625
  Receipt Date: 20180716
  Transmission Date: 20181010
  Serious: Yes (Death, Hospitalization)
  Sender: FDA-Public Use
  Company Number: US-ACTELION-A-NJ2018-174064

PATIENT
  Age: 80 Year
  Sex: Male

DRUGS (10)
  1. OPSUMIT [Suspect]
     Active Substance: MACITENTAN
     Indication: PULMONARY ARTERIAL HYPERTENSION
     Dosage: 10 MG, QD
     Route: 048
     Dates: start: 20171121
  2. PANTOPRAZOLE [Concomitant]
     Active Substance: PANTOPRAZOLE
     Dosage: 40 MG, UNK
     Dates: start: 20101206
  3. PULMICORT TURBUHALER [Concomitant]
     Active Substance: BUDESONIDE
     Dosage: 80 MCG, UNK
     Dates: start: 20160406
  4. CRESTOR [Concomitant]
     Active Substance: ROSUVASTATIN CALCIUM
     Dosage: 10 MG, UNK
     Dates: start: 20101206
  5. CEVIMELINE. [Concomitant]
     Active Substance: CEVIMELINE
     Dosage: 30 MG, UNK
     Dates: start: 20101206
  6. CENTRUM [Concomitant]
     Active Substance: VITAMINS
  7. SPIRIVA [Concomitant]
     Active Substance: TIOTROPIUM BROMIDE MONOHYDRATE
     Dosage: UNK
     Dates: start: 20160406
  8. SEREVENT DISKUS [Concomitant]
     Active Substance: SALMETEROL XINAFOATE
     Dosage: 50 MCG, UNK
     Dates: start: 20170308
  9. PAXIL [Concomitant]
     Active Substance: PAROXETINE HYDROCHLORIDE
     Dosage: 10 MG, UNK
     Dates: start: 20101206
  10. ATIVAN [Concomitant]
     Active Substance: LORAZEPAM
     Dosage: 0.5 MG, UNK
     Dates: start: 20101206

REACTIONS (5)
  - Death [Fatal]
  - Pneumonia [Unknown]
  - Hospitalisation [Unknown]
  - Acute respiratory failure [Unknown]
  - Hypoxia [Unknown]
